FAERS Safety Report 4451202-X (Version None)
Quarter: 2004Q3

REPORT INFORMATION
  Report Type: 
  Country: None (occurrence: None)
  Receive Date: 20040915
  Receipt Date: 20040915
  Transmission Date: 20050211
  Serious: Yes (Hospitalization)
  Sender: FDA-Public Use
  Company Number: None

PATIENT
  Age: 42 Year
  Sex: Female
  Weight: 74.3899 kg

DRUGS (12)
  1. DOCETAXEL [Suspect]
     Indication: PANCREATIC CARCINOMA
     Dosage: 35 MG/M2 IV WKLY D1-D12
     Route: 042
     Dates: start: 20040412, end: 20040616
  2. IRINOTECAN [Suspect]
     Indication: PANCREATIC CARCINOMA
     Dosage: 60 MG/M2 IV WKLY D1-D12
     Route: 042
     Dates: start: 20040412, end: 20040616
  3. ATENOLOL [Concomitant]
  4. FERREX [Concomitant]
  5. LOVENOX [Concomitant]
  6. LIPRAN [Concomitant]
  7. LOMOTIL [Concomitant]
  8. ACIDOPHILUS [Concomitant]
  9. CENTRUM [Concomitant]
  10. INSULIN [Concomitant]
  11. FLAGYLL [Concomitant]
  12. LEVAQUIN [Concomitant]

REACTIONS (1)
  - PERIANAL ABSCESS [None]
